FAERS Safety Report 9814572 (Version 3)
Quarter: 2014Q4

REPORT INFORMATION
  Report Type: Spontaneous
  Country: US (occurrence: US)
  Receive Date: 20140113
  Receipt Date: 20141222
  Transmission Date: 20150529
  Serious: Yes (Death, Life-Threatening, Hospitalization, Other)
  Sender: FDA-Public Use
  Company Number: US-009507513-1401USA003517

PATIENT
  Sex: Male

DRUGS (3)
  1. LISINOPRIL. [Concomitant]
     Active Substance: LISINOPRIL
     Indication: HYPERTENSION
     Dosage: UNK
     Dates: start: 200805
  2. JANUVIA [Suspect]
     Active Substance: SITAGLIPTIN PHOSPHATE
     Indication: TYPE 2 DIABETES MELLITUS
     Dosage: 100 MG, QD
     Route: 048
     Dates: start: 20070927, end: 20081224
  3. GLIMEPIRIDE. [Concomitant]
     Active Substance: GLIMEPIRIDE
     Indication: TYPE 2 DIABETES MELLITUS
     Dosage: UNK
     Dates: start: 200805

REACTIONS (20)
  - Metastases to liver [Fatal]
  - Aortic calcification [Unknown]
  - Urinary tract infection [Unknown]
  - Renal disorder [Unknown]
  - Insulin-requiring type 2 diabetes mellitus [Unknown]
  - Tachycardia [Unknown]
  - Dyspnoea [Unknown]
  - Biopsy liver [Unknown]
  - Pancreatic carcinoma [Fatal]
  - Exploratory operation [Unknown]
  - Intervertebral disc space narrowing [Unknown]
  - Post procedural haemorrhage [Unknown]
  - Angina pectoris [Unknown]
  - Vertebral osteophyte [Unknown]
  - Cataract [Unknown]
  - Cataract operation [Unknown]
  - Cardiac murmur [Unknown]
  - Biopsy pancreas [Unknown]
  - Cholecystectomy [Unknown]
  - Erectile dysfunction [Unknown]

NARRATIVE: CASE EVENT DATE: 2008
